FAERS Safety Report 7529179-X (Version None)
Quarter: 2011Q2

REPORT INFORMATION
  Report Type: 
  Country: None (occurrence: None)
  Receive Date: 20110607
  Receipt Date: 20110531
  Transmission Date: 20111010
  Serious: Yes (Other)
  Sender: FDA-Public Use
  Company Number: US-PURDUE-USA-2011-0068139

PATIENT
  Sex: Male
  Weight: 95.238 kg

DRUGS (1)
  1. BUTRANS [Suspect]
     Indication: BACK PAIN
     Dosage: 5 MCG/HR, DAILY
     Route: 062
     Dates: start: 20110503, end: 20110504

REACTIONS (6)
  - LIP SWELLING [None]
  - MEMORY IMPAIRMENT [None]
  - THROAT TIGHTNESS [None]
  - DYSPNOEA [None]
  - RASH [None]
  - COGNITIVE DISORDER [None]
